FAERS Safety Report 6268299-7 (Version None)
Quarter: 2009Q3

REPORT INFORMATION
  Report Type: 
  Country: None (occurrence: None)
  Receive Date: 20090715
  Receipt Date: 20090707
  Transmission Date: 20100115
  Serious: Yes (Hospitalization)
  Sender: FDA-Public Use
  Company Number: US-ELI_LILLY_AND_COMPANY-US200907001216

PATIENT
  Sex: Male

DRUGS (1)
  1. FORTEO [Suspect]
     Indication: COMPRESSION FRACTURE
     Dosage: UNK, UNK
     Dates: start: 20090414

REACTIONS (3)
  - CYSTITIS [None]
  - OEDEMA PERIPHERAL [None]
  - ORTHOSTATIC HYPOTENSION [None]
